FAERS Safety Report 7240251-4 (Version None)
Quarter: 2011Q1

REPORT INFORMATION
  Report Type: 
  Country: None (occurrence: None)
  Receive Date: 20110113
  Receipt Date: 20101229
  Transmission Date: 20110831
  Serious: Yes (Hospitalization, Other)
  Sender: FDA-Public Use
  Company Number: 2010SP066106

PATIENT
  Age: 67 Year
  Sex: Male

DRUGS (3)
  1. PEGINTERFERON ALFA-2A [Suspect]
     Indication: HEPATITIS C
     Dosage: 180 MCG;QW
  2. RIBAVIRIN [Suspect]
     Indication: HEPATITIS C
     Dosage: 1000 MG;QD
  3. RIBAVIRIN [Suspect]
     Indication: HEPATITIS C
     Dosage: 1000 MG;QD

REACTIONS (9)
  - VARICES OESOPHAGEAL [None]
  - LIVER DISORDER [None]
  - PANCYTOPENIA [None]
  - ASTHENIA [None]
  - DECREASED APPETITE [None]
  - PORTAL HYPERTENSION [None]
  - GENERAL PHYSICAL HEALTH DETERIORATION [None]
  - WEIGHT DECREASED [None]
  - HAEMATEMESIS [None]
